FAERS Safety Report 17235239 (Version 3)
Quarter: 2020Q1

REPORT INFORMATION
  Report Type: Report from Study
  Country: CO (occurrence: CO)
  Receive Date: 20200106
  Receipt Date: 20200122
  Transmission Date: 20200409
  Serious: Yes (Hospitalization, Other)
  Sender: FDA-Public Use
  Company Number: CO-BRISTOL-MYERS SQUIBB COMPANY-BMS-2019-103064

PATIENT
  Age: 65 Year
  Sex: Female

DRUGS (2)
  1. ABATACEPT [Suspect]
     Active Substance: ABATACEPT
     Indication: RHEUMATOID ARTHRITIS
     Dosage: 500 MILLIGRAM, Q4WK
     Route: 042
     Dates: start: 20160715
  2. ABATACEPT [Suspect]
     Active Substance: ABATACEPT
     Indication: PRODUCT USED FOR UNKNOWN INDICATION
     Dosage: 250 MILLIGRAM, Q4WK
     Route: 042
     Dates: start: 20160715

REACTIONS (17)
  - Asthenia [Recovering/Resolving]
  - Syncope [Recovered/Resolved]
  - Decreased immune responsiveness [Unknown]
  - Staphylococcal infection [Recovered/Resolved]
  - Hypotension [Recovering/Resolving]
  - Wound dehiscence [Recovering/Resolving]
  - Herpes virus infection [Recovering/Resolving]
  - Head injury [Unknown]
  - Influenza [Unknown]
  - Spinal pain [Recovering/Resolving]
  - Pain [Recovering/Resolving]
  - Pain in extremity [Recovering/Resolving]
  - Postoperative wound infection [Recovering/Resolving]
  - Spinal disorder [Recovered/Resolved]
  - Cough [Recovering/Resolving]
  - Nasopharyngitis [Recovering/Resolving]
  - Prescribed underdose [Unknown]

NARRATIVE: CASE EVENT DATE: 20190619
